FAERS Safety Report 8187521-3 (Version None)
Quarter: 2012Q1

REPORT INFORMATION
  Report Type: 
  Country: None (occurrence: None)
  Receive Date: 20120302
  Receipt Date: 20120223
  Transmission Date: 20120608
  Serious: Yes (Hospitalization)
  Sender: FDA-Public Use
  Company Number: 024365

PATIENT
  Age: 76 Year
  Sex: Female

DRUGS (6)
  1. COMBISARTAN (HYDROCHLOROTHIAZIDE, VALSARTAN) [Concomitant]
  2. ASPIRIN [Concomitant]
  3. SIMVASTATIN [Concomitant]
  4. MACUGEN [Suspect]
     Indication: AGE-RELATED MACULAR DEGENERATION
     Dosage: 0.3 MG, EVERY 6-8 WEEKS
     Dates: start: 20120208
  5. METHYLPREDNISOLONE [Concomitant]
  6. PANTOPRAZOLE [Concomitant]

REACTIONS (2)
  - UPPER LIMB FRACTURE [None]
  - FALL [None]
